FAERS Safety Report 23427232 (Version 5)
Quarter: 2024Q1

REPORT INFORMATION
  Report Type: Spontaneous
  Country: DE (occurrence: DE)
  Receive Date: 20240122
  Receipt Date: 20240329
  Transmission Date: 20240409
  Serious: Yes (Life-Threatening, Hospitalization, Other)
  Sender: FDA-Public Use
  Company Number: DE-002147023-NVSC2024DE012179

PATIENT
  Age: 61 Year
  Sex: Female

DRUGS (16)
  1. MAYZENT [Suspect]
     Active Substance: SIPONIMOD
     Indication: Progressive multiple sclerosis
     Dosage: UNK, QD (1X DAILY (1-0-0)
     Route: 048
     Dates: start: 20230915
  2. MAYZENT [Suspect]
     Active Substance: SIPONIMOD
     Dosage: 0.25 MG, QD 1X DAILY (DAY 1)
     Route: 065
  3. MAYZENT [Suspect]
     Active Substance: SIPONIMOD
     Dosage: 0.25 MG, QD 1X DAILY (DAY 2)
     Route: 065
  4. MAYZENT [Suspect]
     Active Substance: SIPONIMOD
     Dosage: 0.5 MG, QD 1X DAILY (DAY 3)
     Route: 065
  5. MAYZENT [Suspect]
     Active Substance: SIPONIMOD
     Dosage: 0.75 MG, QD 1X DAILY (DAY 4)
     Route: 065
  6. MAYZENT [Suspect]
     Active Substance: SIPONIMOD
     Dosage: 1.25 MG, QD 1X DAILY (DAY 5)
     Route: 065
  7. MAYZENT [Suspect]
     Active Substance: SIPONIMOD
     Dosage: 2.00 MG, QD 1X DAILY (DAY 6)
     Route: 065
  8. CLOPIDOGREL [Concomitant]
     Active Substance: CLOPIDOGREL BISULFATE
     Indication: Product used for unknown indication
     Dosage: UNK
     Route: 065
  9. ATORVASTATIN [Concomitant]
     Active Substance: ATORVASTATIN
     Indication: Product used for unknown indication
     Dosage: UNK
     Route: 065
  10. EZETIMIBE [Concomitant]
     Active Substance: EZETIMIBE
     Indication: Product used for unknown indication
     Dosage: UNK
     Route: 065
  11. ASPIRIN [Concomitant]
     Active Substance: ASPIRIN
     Indication: Product used for unknown indication
     Dosage: UNK
     Route: 065
  12. BISOPROLOL [Concomitant]
     Active Substance: BISOPROLOL\BISOPROLOL FUMARATE
     Indication: Product used for unknown indication
     Dosage: UNK
     Route: 065
  13. CANDESARTAN [Concomitant]
     Active Substance: CANDESARTAN
     Indication: Product used for unknown indication
     Dosage: UNK
     Route: 065
  14. TORSEMIDE [Concomitant]
     Active Substance: TORSEMIDE
     Indication: Product used for unknown indication
     Dosage: UNK
     Route: 065
  15. LEVOTHYROXINE [Concomitant]
     Active Substance: LEVOTHYROXINE\LEVOTHYROXINE SODIUM
     Indication: Product used for unknown indication
     Dosage: UNK
     Route: 065
  16. CHOLECALCIFEROL [Concomitant]
     Active Substance: CHOLECALCIFEROL
     Indication: Product used for unknown indication
     Dosage: UNK
     Route: 065

REACTIONS (5)
  - Myocardial infarction [Recovered/Resolved]
  - Arteriosclerosis [Recovered/Resolved]
  - Coronary artery disease [Recovered/Resolved]
  - Diabetes mellitus [Not Recovered/Not Resolved]
  - Contraindicated product administered [Not Recovered/Not Resolved]

NARRATIVE: CASE EVENT DATE: 20240101
